FAERS Safety Report 9056450 (Version 5)
Quarter: 2013Q3

REPORT INFORMATION
  Report Type: Report from Study
  Country: US (occurrence: US)
  Receive Date: 20130204
  Receipt Date: 20130924
  Transmission Date: 20140515
  Serious: Yes (Other)
  Sender: FDA-Public Use
  Company Number: US-US-EMD SERONO, INC.-7190640

PATIENT
  Sex: Female
  Weight: 45 kg

DRUGS (1)
  1. REBIF [Suspect]
     Indication: MULTIPLE SCLEROSIS
     Route: 058
     Dates: start: 20090828

REACTIONS (12)
  - Menorrhagia [Recovered/Resolved]
  - Adnexa uteri pain [Recovered/Resolved]
  - Abdominal pain [Recovered/Resolved]
  - Blood pressure increased [Unknown]
  - Neurofibromatosis [Unknown]
  - Menopause [Unknown]
  - Injection site scar [Not Recovered/Not Resolved]
  - Nausea [Unknown]
  - Vomiting [Unknown]
  - Weight gain poor [Unknown]
  - Influenza like illness [Not Recovered/Not Resolved]
  - Platelet count decreased [Not Recovered/Not Resolved]
